FAERS Safety Report 12060476 (Version 1)
Quarter: 2016Q1

REPORT INFORMATION
  Report Type: Spontaneous
  Country: US (occurrence: US)
  Receive Date: 20160210
  Receipt Date: 20160210
  Transmission Date: 20160526
  Serious: No
  Sender: FDA-Public Use
  Company Number: US-PFIZER INC-2016018175

PATIENT
  Age: 84 Year
  Sex: Female
  Weight: 95.25 kg

DRUGS (3)
  1. BABY ASPIRIN [Concomitant]
     Active Substance: ASPIRIN
  2. CELECOXIB. [Suspect]
     Active Substance: CELECOXIB
     Indication: ARTHRITIS
     Dosage: 200 MG, 1X/DAY
     Dates: start: 20151228, end: 20160112
  3. RANITIDINE [Concomitant]
     Active Substance: RANITIDINE\RANITIDINE HYDROCHLORIDE
     Dosage: 150 MG, ONE TIMES A DAY (AS NEEDED)

REACTIONS (5)
  - Asthenia [Unknown]
  - Hyperhidrosis [Unknown]
  - Abdominal discomfort [Unknown]
  - Fatigue [Unknown]
  - Blood pressure increased [Unknown]

NARRATIVE: CASE EVENT DATE: 20160112
